FAERS Safety Report 5563565-2 (Version None)
Quarter: 2007Q4

REPORT INFORMATION
  Report Type: 
  Country: None (occurrence: None)
  Receive Date: 20071217
  Receipt Date: 20070712
  Transmission Date: 20080405
  Serious: No
  Sender: FDA-Public Use
  Company Number: US-ASTRAZENECA-2007UW16374

PATIENT
  Age: 37 Year
  Sex: Male
  Weight: 95.3 kg

DRUGS (1)
  1. CRESTOR [Suspect]
     Indication: BLOOD CHOLESTEROL INCREASED
     Route: 048
     Dates: start: 20070705

REACTIONS (2)
  - BOWEL MOVEMENT IRREGULARITY [None]
  - STOMACH DISCOMFORT [None]
